FAERS Safety Report 4278592-5 (Version None)
Quarter: 2004Q1

REPORT INFORMATION
  Report Type: 
  Country: None (occurrence: None)
  Receive Date: 20040123
  Receipt Date: 20040123
  Transmission Date: 20041129
  Serious: Yes (Death)
  Sender: FDA-Public Use
  Company Number: None

PATIENT
  Age: 78 Year
  Sex: Male

DRUGS (9)
  1. CELEBREX [Suspect]
     Indication: LUNG NEOPLASM MALIGNANT
     Dosage: 400 MG BID PO
     Route: 048
     Dates: start: 20031103, end: 20031223
  2. TAXOTERE [Suspect]
     Indication: LUNG NEOPLASM MALIGNANT
     Dosage: 36 MG/M2 IV
     Route: 042
     Dates: start: 20031111, end: 20031223
  3. AMAYRL [Concomitant]
  4. MAALOX [Concomitant]
  5. MSN [Concomitant]
  6. MGN3 [Concomitant]
  7. UFN [Concomitant]
  8. ZANTAC [Concomitant]
  9. CALCITONIN-SALMON [Concomitant]

REACTIONS (21)
  - ASTHENIA [None]
  - BLOOD CREATININE INCREASED [None]
  - BLOOD PRESSURE DECREASED [None]
  - BLOOD UREA INCREASED [None]
  - COUGH [None]
  - DECREASED APPETITE [None]
  - DEHYDRATION [None]
  - DYSPEPSIA [None]
  - DYSPNOEA [None]
  - FATIGUE [None]
  - HOARSENESS [None]
  - LETHARGY [None]
  - PNEUMONIA [None]
  - PYREXIA [None]
  - RALES [None]
  - RESPIRATORY ARREST [None]
  - SINUS HEADACHE [None]
  - SINUSITIS [None]
  - SOMNOLENCE [None]
  - TACHYCARDIA [None]
  - WEIGHT DECREASED [None]
